FAERS Safety Report 7944637-1 (Version None)
Quarter: 2011Q4

REPORT INFORMATION
  Report Type: 
  Country: None (occurrence: None)
  Receive Date: 20111122
  Receipt Date: 20110711
  Transmission Date: 20120403
  Serious: Yes (Other)
  Sender: FDA-Public Use
  Company Number: PHHY2011US25108

PATIENT
  Age: 42 Year
  Sex: Female

DRUGS (4)
  1. PROPRANOLOL [Concomitant]
  2. GILENYA [Suspect]
     Indication: MULTIPLE SCLEROSIS
     Dosage: 0.5 MG, QD, ORAL 0.25 MG, UNK, ORAL
     Route: 048
     Dates: start: 20110318
  3. PREDNISONE TAB [Concomitant]
  4. NADOLOL [Concomitant]

REACTIONS (3)
  - MIGRAINE [None]
  - INCORRECT DOSE ADMINISTERED [None]
  - HEADACHE [None]
